FAERS Safety Report 17358291 (Version 1)
Quarter: 2020Q1

REPORT INFORMATION
  Report Type: Report from Study
  Country: US (occurrence: US)
  Receive Date: 20200201
  Receipt Date: 20200201
  Transmission Date: 20200409
  Serious: Yes (Other)
  Sender: FDA-Public Use
  Company Number: US-ROCHE-2534518

PATIENT
  Age: 84 Year
  Sex: Female
  Weight: 59.02 kg

DRUGS (4)
  1. LUCENTIS [Suspect]
     Active Substance: RANIBIZUMAB
     Indication: NEOVASCULAR AGE-RELATED MACULAR DEGENERATION
     Route: 031
     Dates: start: 201905
  2. TETRAHYDROZOLINE [TETRYZOLINE] [Concomitant]
     Indication: MACULAR DEGENERATION
     Dosage: AS NEEDED.
     Route: 031
     Dates: start: 2018
  3. LUCENTIS [Suspect]
     Active Substance: RANIBIZUMAB
     Indication: CHOROIDAL NEOVASCULARISATION
  4. AREDS [Concomitant]
     Active Substance: MINERALS\VITAMINS
     Indication: MACULAR DEGENERATION
     Route: 048
     Dates: start: 2005

REACTIONS (4)
  - Eye haemorrhage [Recovered/Resolved]
  - Vitreous floaters [Unknown]
  - Intentional product use issue [Unknown]
  - Off label use [Unknown]

NARRATIVE: CASE EVENT DATE: 201905
